FAERS Safety Report 14329412 (Version 1)
Quarter: 2017Q4

REPORT INFORMATION
  Report Type: Spontaneous
  Country: US (occurrence: US)
  Receive Date: 20171227
  Receipt Date: 20171227
  Transmission Date: 20180321
  Serious: No
  Sender: FDA-Public Use
  Company Number: US-TEVA-2017-US-837274

PATIENT
  Sex: Female

DRUGS (2)
  1. MICONAZOLE 2% [Suspect]
     Active Substance: MICONAZOLE
     Indication: FUNGAL INFECTION
     Dates: start: 201707
  2. MICONAZOLE 2% [Suspect]
     Active Substance: MICONAZOLE
     Dates: start: 20171025

REACTIONS (6)
  - Vaginal haemorrhage [Recovered/Resolved]
  - Feeling hot [Unknown]
  - Blood pressure increased [Unknown]
  - Urine odour abnormal [Unknown]
  - Dizziness [Unknown]
  - Vaginal haemorrhage [Unknown]

NARRATIVE: CASE EVENT DATE: 201707
